FAERS Safety Report 14929276 (Version 1)
Quarter: 2018Q2

REPORT INFORMATION
  Report Type: Report from Study
  Country: CO (occurrence: CO)
  Receive Date: 20180523
  Receipt Date: 20180523
  Transmission Date: 20180711
  Serious: Yes (Hospitalization, Other)
  Sender: FDA-Public Use
  Company Number: CO-AMGEN-COLSL2018067553

PATIENT
  Age: 32 Year
  Sex: Female

DRUGS (2)
  1. NPLATE [Suspect]
     Active Substance: ROMIPLOSTIM
     Indication: IMMUNE THROMBOCYTOPENIC PURPURA
     Dosage: 200 MUG, QWK
     Route: 058
     Dates: start: 20171027, end: 201801
  2. NPLATE [Suspect]
     Active Substance: ROMIPLOSTIM
     Dosage: 200 MUG, QWK
     Route: 058
     Dates: start: 20180216

REACTIONS (2)
  - Unevaluable event [Unknown]
  - Drug ineffective [Not Recovered/Not Resolved]
